FAERS Safety Report 7492190-1 (Version None)
Quarter: 2011Q2

REPORT INFORMATION
  Report Type: 
  Country: None (occurrence: None)
  Receive Date: 20110519
  Receipt Date: 20101026
  Transmission Date: 20111010
  Serious: No
  Sender: FDA-Public Use
  Company Number: US-NOVEN-ALL1-2010-05575

PATIENT
  Sex: Female
  Weight: 49.887 kg

DRUGS (1)
  1. DAYTRANA [Suspect]
     Dosage: 10 MG, 1X/DAY:QD
     Route: 062
     Dates: start: 20101025, end: 20101026

REACTIONS (5)
  - ASTHENIA [None]
  - POOR QUALITY SLEEP [None]
  - INCORRECT DRUG ADMINISTRATION DURATION [None]
  - APPLICATION SITE ERYTHEMA [None]
  - PRODUCT QUALITY ISSUE [None]
